FAERS Safety Report 7734024-3 (Version None)
Quarter: 2011Q3

REPORT INFORMATION
  Report Type: 
  Country: None (occurrence: None)
  Receive Date: 20110906
  Receipt Date: 20110906
  Transmission Date: 20111222
  Serious: Yes (Hospitalization)
  Sender: FDA-Public Use
  Company Number: None

PATIENT
  Age: 50 Year
  Sex: Male
  Weight: 122 kg

DRUGS (2)
  1. ENOXAPARIN [Suspect]
     Indication: PULMONARY EMBOLISM
     Dosage: 70 MG BID SQ
     Route: 058
     Dates: start: 20100914, end: 20100920
  2. SUTENT [Suspect]
     Indication: RENAL CELL CARCINOMA
     Dosage: 50 MG EVERY DAY PO
     Route: 048
     Dates: start: 20100914, end: 20100920

REACTIONS (10)
  - NAUSEA [None]
  - PALPITATIONS [None]
  - HAEMATEMESIS [None]
  - EROSIVE OESOPHAGITIS [None]
  - MELAENA [None]
  - CHEST PAIN [None]
  - DUODENAL ULCER HAEMORRHAGE [None]
  - HIATUS HERNIA [None]
  - DIZZINESS [None]
  - DYSPNOEA EXERTIONAL [None]
